FAERS Safety Report 7910153-6 (Version None)
Quarter: 2011Q4

REPORT INFORMATION
  Report Type: 
  Country: None (occurrence: None)
  Receive Date: 20111111
  Receipt Date: 20111107
  Transmission Date: 20120403
  Serious: Yes (Other)
  Sender: FDA-Public Use
  Company Number: US-ABBOTT-11P-163-0867298-00

PATIENT
  Sex: Female
  Weight: 62.652 kg

DRUGS (11)
  1. FOLIC ACID [Concomitant]
     Indication: VITAMIN SUPPLEMENTATION
  2. DIOVAN [Concomitant]
     Indication: HYPERTENSION
  3. PROBIOTIC [Concomitant]
     Indication: PRODUCT USED FOR UNKNOWN INDICATION
  4. DIFUSIONAL [Concomitant]
     Indication: ARTHRALGIA
  5. PREVACID [Concomitant]
     Indication: GASTROOESOPHAGEAL REFLUX DISEASE
  6. PREVACID [Concomitant]
     Indication: NAUSEA
  7. PHENERGAN [Concomitant]
     Indication: NAUSEA
  8. AMBIEN [Concomitant]
     Indication: SLEEP DISORDER
  9. METHOTREXATE [Concomitant]
     Indication: RHEUMATOID ARTHRITIS
  10. SUSSANEX [Concomitant]
     Indication: PRODUCT USED FOR UNKNOWN INDICATION
  11. HUMIRA [Suspect]
     Indication: RHEUMATOID ARTHRITIS
     Dates: start: 20110801

REACTIONS (16)
  - VISION BLURRED [None]
  - VOMITING [None]
  - BONE PAIN [None]
  - DECREASED APPETITE [None]
  - WEIGHT DECREASED [None]
  - URINARY TRACT INFECTION [None]
  - HEADACHE [None]
  - DIARRHOEA [None]
  - ANXIETY [None]
  - PYREXIA [None]
  - FATIGUE [None]
  - ALOPECIA [None]
  - KIDNEY INFECTION [None]
  - BACK PAIN [None]
  - APATHY [None]
  - PANIC ATTACK [None]
